FAERS Safety Report 16384676 (Version 1)
Quarter: 2019Q2

REPORT INFORMATION
  Report Type: Spontaneous
  Country: CA (occurrence: CA)
  Receive Date: 20190603
  Receipt Date: 20190603
  Transmission Date: 20190711
  Serious: Yes (Hospitalization, Other)
  Sender: FDA-Public Use
  Company Number: CA-TEVA-2019-CA-1058265

PATIENT
  Age: 74 Year
  Sex: Male

DRUGS (1)
  1. INDOMETACIN [Suspect]
     Active Substance: INDOMETHACIN
     Indication: ARTHRITIS
     Route: 065

REACTIONS (4)
  - Intussusception [Recovered/Resolved]
  - Large intestinal stenosis [Recovered/Resolved]
  - Small intestinal obstruction [Recovered/Resolved]
  - Large intestinal ulcer [Recovered/Resolved]
